FAERS Safety Report 6086852-0 (Version None)
Quarter: 2009Q1

REPORT INFORMATION
  Report Type: 
  Country: None (occurrence: None)
  Receive Date: 20090217
  Receipt Date: 20090202
  Transmission Date: 20090719
  Serious: Yes (Death)
  Sender: FDA-Public Use
  Company Number: CHPA2009US01759

PATIENT
  Age: 43 Year
  Sex: Male

DRUGS (6)
  1. SENNA GLYCOSIDES (CA SALTS OF PURIFIED SENNA EXTRACT) (NCH) (SENNA GLY [Suspect]
     Dosage: ORAL
     Route: 048
  2. CLOZAPINE [Suspect]
     Dosage: ORAL
     Route: 048
  3. HALOPERIDOL [Suspect]
     Dosage: ORAL
     Route: 048
  4. BENZTROPINE MESYLATE [Suspect]
     Dosage: ORAL
     Route: 048
  5. GEMFIBROZIL [Suspect]
     Dosage: ORAL
     Route: 048
  6. VITAMINS (NO INGREDIENTS/SUBSTANCES) [Suspect]
     Dosage: ORAL
     Route: 048

REACTIONS (1)
  - COMPLETED SUICIDE [None]
